FAERS Safety Report 20770335 (Version 1)
Quarter: 2022Q2

REPORT INFORMATION
  Report Type: Spontaneous
  Country: RU (occurrence: None)
  Receive Date: 20220429
  Receipt Date: 20220429
  Transmission Date: 20220721
  Serious: Yes (Other)
  Sender: FDA-Public Use
  Company Number: RU-ROCHE-3086275

PATIENT
  Age: 64 Year
  Sex: Female

DRUGS (12)
  1. RITUXIMAB [Suspect]
     Active Substance: RITUXIMAB
     Indication: Diffuse large B-cell lymphoma
     Dosage: RITUXIMAB 375 MG/M2 EQUAL TO 700 MG D1
     Route: 042
     Dates: start: 20220119, end: 20220121
  2. RITUXIMAB [Suspect]
     Active Substance: RITUXIMAB
     Indication: Diffuse large B-cell lymphoma
     Dosage: ON 10/JUN/2021, POLYCHEMOTHERAPY WAS INITIATED IN THE ^R-CHOD^ REGIMEN
     Route: 065
     Dates: start: 20210610
  3. RITUXIMAB [Suspect]
     Active Substance: RITUXIMAB
     Dosage: SECOND-LINE POLYCHEMOTHERAPY IN THE ^R-DHAP^REGIMEN NO. 1 FROM 30/SEP/2021 THROUGH 04/OCT/2021 (DOSE
     Route: 065
     Dates: start: 20210930, end: 20211004
  4. POLATUZUMAB VEDOTIN [Suspect]
     Active Substance: POLATUZUMAB VEDOTIN
     Indication: Diffuse large B-cell lymphoma
     Dosage: POLATUZUMAB VEDOTIN 1.8 MG/KG D2 (2 CYCLES OF POLATUZUMAB+BR )
     Route: 065
  5. BENDAMUSTINE [Suspect]
     Active Substance: BENDAMUSTINE
     Indication: Diffuse large B-cell lymphoma
     Dosage: BENDAMUSTINE 90 MG/M2EQUAL TO  150 MG D2-3
     Route: 065
     Dates: start: 20220119, end: 20220121
  6. CYCLOPHOSPHAMIDE [Suspect]
     Active Substance: CYCLOPHOSPHAMIDE
     Indication: Diffuse large B-cell lymphoma
     Dosage: ON 10/JUN/2021, POLYCHEMOTHERAPY WAS INITIATED IN THE ^R-CHOD^ REGIMEN
     Route: 065
     Dates: start: 20210610
  7. DOXORUBICIN [Suspect]
     Active Substance: DOXORUBICIN
     Indication: Diffuse large B-cell lymphoma
     Dosage: ON 10/JUN/2021, POLYCHEMOTHERAPY WAS INITIATED IN THE ^R-CHOD^ REGIMEN
     Route: 065
     Dates: start: 20210610
  8. VINCRISTINE [Suspect]
     Active Substance: VINCRISTINE
     Indication: Diffuse large B-cell lymphoma
     Dosage: ON 10/JUN/2021, POLYCHEMOTHERAPY WAS INITIATED IN THE ^R-CHOD^ REGIMEN
     Route: 065
     Dates: start: 20210610
  9. DEXAMETHASONE [Suspect]
     Active Substance: DEXAMETHASONE
     Indication: Diffuse large B-cell lymphoma
     Dosage: ON 10/JUN/2021, POLYCHEMOTHERAPY WAS INITIATED IN THE ^R-CHOD^ REGIMEN
     Route: 065
     Dates: start: 20210610
  10. DEXAMETHASONE [Suspect]
     Active Substance: DEXAMETHASONE
     Dosage: DUE TO THE RECURRENCE OF SECOND-LINE POLYCHEMOTHERAPY IN THE ^R-DHAP^ REGIMEN NO. 1 FROM 30/SEP/2021
     Route: 065
     Dates: start: 20210930, end: 20211004
  11. CYTARABINE [Suspect]
     Active Substance: CYTARABINE
     Indication: Diffuse large B-cell lymphoma
     Dosage: SECOND-LINE POLYCHEMOTHERAPY IN THE ^R-DHAP^ REGIMEN NO. 1 FROM 30/SEP/2021 THROUGH 04/OCT/2021 (DOS
     Route: 065
     Dates: start: 20210930, end: 20211004
  12. CISPLATIN [Suspect]
     Active Substance: CISPLATIN
     Indication: Diffuse large B-cell lymphoma
     Dosage: SECOND-LINE POLYCHEMOTHERAPY IN THE ^R-DHAP^ REGIMEN NO. 1 FROM 30/SEP/2021 THROUGH 04/OCT/2021 (DOS
     Route: 065
     Dates: start: 20210930, end: 20211004

REACTIONS (5)
  - Cystitis klebsiella [Unknown]
  - Staphylococcal bacteraemia [Unknown]
  - Pneumonia [Unknown]
  - COVID-19 [Unknown]
  - Off label use [Unknown]

NARRATIVE: CASE EVENT DATE: 20211019
